FAERS Safety Report 16318074 (Version 1)
Quarter: 2019Q2

REPORT INFORMATION
  Report Type: Spontaneous
  Country: US (occurrence: US)
  Receive Date: 20190516
  Receipt Date: 20190516
  Transmission Date: 20190711
  Serious: Yes (Hospitalization, Other)
  Sender: FDA-Public Use
  Company Number: US-NOVEN PHARMACEUTICALS, INC.-US2019000240

PATIENT

DRUGS (6)
  1. COMBIPATCH [Suspect]
     Active Substance: ESTRADIOL\NORETHINDRONE ACETATE
     Dosage: 50/250 MG, 1/WEEK EVERY SATURDAY
     Route: 062
     Dates: start: 2017
  2. MOBIC [Concomitant]
     Active Substance: MELOXICAM
     Indication: BURSITIS
  3. COMBIPATCH [Suspect]
     Active Substance: ESTRADIOL\NORETHINDRONE ACETATE
     Dosage: CUTTING 50/250 MG PATCH INTO BITS AND USING, UNKNOWN
     Route: 062
     Dates: end: 2016
  4. LORATADINE. [Concomitant]
     Active Substance: LORATADINE
     Indication: HYPERSENSITIVITY
  5. ALDACTONE [Concomitant]
     Active Substance: SPIRONOLACTONE
     Indication: ACNE
  6. COMBIPATCH [Suspect]
     Active Substance: ESTRADIOL\NORETHINDRONE ACETATE
     Indication: HOT FLUSH
     Dosage: 50/250 MG, UNKNOWN
     Route: 062
     Dates: start: 1998

REACTIONS (7)
  - Bursitis [Not Recovered/Not Resolved]
  - Hot flush [Recovering/Resolving]
  - Breast cancer [Recovered/Resolved]
  - Prescribed underdose [Recovered/Resolved]
  - Mastectomy [Recovered/Resolved]
  - Therapy cessation [Recovered/Resolved]
  - Inappropriate schedule of product administration [Not Recovered/Not Resolved]

NARRATIVE: CASE EVENT DATE: 2016
